FAERS Safety Report 7992711-6 (Version None)
Quarter: 2011Q4

REPORT INFORMATION
  Report Type: 
  Country: None (occurrence: None)
  Receive Date: 20111219
  Receipt Date: 20110221
  Transmission Date: 20120403
  Serious: No
  Sender: FDA-Public Use
  Company Number: US-ASTRAZENECA-2011SE10076

PATIENT
  Sex: Female

DRUGS (2)
  1. CRESTOR [Suspect]
     Route: 048
  2. MIRALAX [Suspect]
     Dosage: 17 GM
     Route: 065

REACTIONS (3)
  - FLATULENCE [None]
  - HEART RATE INCREASED [None]
  - MYALGIA [None]
